FAERS Safety Report 17200771 (Version 1)
Quarter: 2019Q4

REPORT INFORMATION
  Report Type: Spontaneous
  Country: US (occurrence: US)
  Receive Date: 20191226
  Receipt Date: 20191226
  Transmission Date: 20200122
  Serious: No
  Sender: FDA-Public Use
  Company Number: US-ADVANZ PHARMA-201912003102

PATIENT

DRUGS (1)
  1. HYDROXYCHLOROQUINE [Suspect]
     Active Substance: HYDROXYCHLOROQUINE
     Dosage: UNK,PLAQUENIL

REACTIONS (4)
  - Skin fissures [Unknown]
  - Burning sensation [Unknown]
  - Paraesthesia [Unknown]
  - Gait disturbance [Unknown]
